FAERS Safety Report 7374803-8 (Version None)
Quarter: 2011Q1

REPORT INFORMATION
  Report Type: 
  Country: None (occurrence: None)
  Receive Date: 20110325
  Receipt Date: 20110111
  Transmission Date: 20110831
  Serious: No
  Sender: FDA-Public Use
  Company Number: US-MYLANLABS-2010S1022236

PATIENT
  Age: 43 Year
  Sex: Female

DRUGS (18)
  1. FENTANYL-100 [Suspect]
     Indication: PAIN IN EXTREMITY
     Dosage: CHANGED Q 72 HOURS
     Route: 062
     Dates: start: 20090101
  2. FENTANYL-100 [Suspect]
     Indication: BACK PAIN
     Dosage: CHANGED Q 72 HOURS
     Route: 062
     Dates: start: 20090101
  3. FENTANYL-100 [Suspect]
     Dosage: CHANGED Q 72 HOURS
     Route: 062
     Dates: start: 20090101
  4. LISINOPRIL AND HYDROCHLOROTHIAZIDE [Concomitant]
     Indication: BLOOD PRESSURE INCREASED
     Dosage: 20MG/25MG
  5. ASCORBIC ACID [Concomitant]
  6. MECLIZINE [Concomitant]
  7. FENTANYL-100 [Suspect]
     Dosage: CHANGED Q 72 HOURS
     Route: 062
     Dates: start: 20090101
  8. FENTANYL-100 [Suspect]
     Dosage: CHANGED Q 72 HOURS
     Route: 062
     Dates: start: 20090101
  9. SEROQUEL [Concomitant]
  10. FENTANYL-100 [Suspect]
     Dosage: CHANGED Q 72 HOURS
     Route: 062
     Dates: start: 20090101
  11. FENTANYL-100 [Suspect]
     Indication: NECK PAIN
     Dosage: CHANGED Q 72 HOURS
     Route: 062
     Dates: start: 20090101
  12. FISH OIL [Concomitant]
  13. NEXIUM [Concomitant]
     Indication: ABDOMINAL DISCOMFORT
  14. FENTANYL-100 [Suspect]
     Indication: MUSCULOSKELETAL PAIN
     Dosage: CHANGED Q 72 HOURS
     Route: 062
     Dates: start: 20090101
  15. FENTANYL-100 [Suspect]
     Dosage: CHANGED Q 72 HOURS
     Route: 062
     Dates: start: 20090101
  16. AMITIZA [Concomitant]
  17. FENTANYL-100 [Suspect]
     Indication: ARTHRALGIA
     Dosage: CHANGED Q 72 HOURS
     Route: 062
     Dates: start: 20090101
  18. CYCLOBENZAPRINE [Concomitant]

REACTIONS (9)
  - FATIGUE [None]
  - POLLAKIURIA [None]
  - PAIN [None]
  - DECREASED APPETITE [None]
  - APATHY [None]
  - CONSTIPATION [None]
  - DRUG EFFECT DECREASED [None]
  - ASTHENIA [None]
  - HYPOAESTHESIA ORAL [None]
